FAERS Safety Report 14145828 (Version 2)
Quarter: 2017Q4

REPORT INFORMATION
  Report Type: Spontaneous
  Country: BR (occurrence: BR)
  Receive Date: 20171031
  Receipt Date: 20171107
  Transmission Date: 20180321
  Serious: Yes (Disabling)
  Sender: FDA-Public Use
  Company Number: BR-ABBVIE-17S-020-2145291-00

PATIENT
  Age: 48 Year
  Sex: Female
  Weight: 73 kg

DRUGS (5)
  1. MIMPARA [Suspect]
     Active Substance: CINACALCET HYDROCHLORIDE
     Indication: THYROID DISORDER
     Dosage: DOSE INCREASED
     Route: 048
     Dates: start: 201705
  2. MIMPARA [Suspect]
     Active Substance: CINACALCET HYDROCHLORIDE
     Route: 048
  3. ZEMPLAR [Suspect]
     Active Substance: PARICALCITOL
     Dosage: FORM STRENGTH: 5MCG/ML
     Route: 042
  4. ATENSINA [Concomitant]
     Active Substance: CLONIDINE
     Indication: HYPERTENSION
  5. ZEMPLAR [Suspect]
     Active Substance: PARICALCITOL
     Indication: THYROID HORMONES INCREASED
     Dosage: FORM STRENGTH: 5 MCG/ML
     Route: 042
     Dates: end: 201705

REACTIONS (9)
  - Gait inability [Not Recovered/Not Resolved]
  - Thyroid hormones increased [Not Recovered/Not Resolved]
  - Blood potassium increased [Unknown]
  - Bone pain [Not Recovered/Not Resolved]
  - Drug ineffective [Not Recovered/Not Resolved]
  - Blood sodium increased [Unknown]
  - Blood pressure increased [Recovering/Resolving]
  - Product storage error [Unknown]
  - Chills [Recovered/Resolved]

NARRATIVE: CASE EVENT DATE: 201702
